FAERS Safety Report 22161940 (Version 4)
Quarter: 2023Q4

REPORT INFORMATION
  Report Type: Spontaneous
  Country: US (occurrence: US)
  Receive Date: 20230331
  Receipt Date: 20231218
  Transmission Date: 20240110
  Serious: Yes (Hospitalization)
  Sender: FDA-Public Use
  Company Number: US-PFIZER INC-PV202300059214

PATIENT
  Age: 64 Year
  Sex: Female
  Weight: 81.633 kg

DRUGS (1)
  1. CIBINQO [Suspect]
     Active Substance: ABROCITINIB
     Indication: Dermatitis atopic
     Dosage: 50 MG

REACTIONS (7)
  - Dizziness [Recovered/Resolved]
  - Vertigo [Unknown]
  - Migraine [Unknown]
  - Bladder disorder [Unknown]
  - Skin irritation [Unknown]
  - Erythema [Unknown]
  - Brain fog [Unknown]
